FAERS Safety Report 6904406-8 (Version None)
Quarter: 2010Q3

REPORT INFORMATION
  Report Type: 
  Country: None (occurrence: None)
  Receive Date: 20100804
  Receipt Date: 20090509
  Transmission Date: 20110219
  Serious: No
  Sender: FDA-Public Use
  Company Number: US-PFIZER INC-2009190511

PATIENT
  Sex: Female
  Weight: 89.4 kg

DRUGS (7)
  1. LYRICA [Suspect]
     Indication: PARAESTHESIA
     Dosage: 150 MG, 2X/DAY
     Dates: start: 20051109, end: 20090326
  2. LYRICA [Suspect]
     Indication: BACK PAIN
  3. LYRICA [Suspect]
     Indication: MUSCULOSKELETAL PAIN
  4. AVAPRO [Concomitant]
     Dosage: UNK
  5. NEXIUM [Concomitant]
     Dosage: UNK
  6. CRESTOR [Concomitant]
     Dosage: UNK
  7. LORTAB [Concomitant]
     Dosage: UNK

REACTIONS (4)
  - DRY MOUTH [None]
  - GINGIVAL ERYTHEMA [None]
  - GINGIVAL PAIN [None]
  - GINGIVITIS [None]
